FAERS Safety Report 14337677 (Version 2)
Quarter: 2017Q4

REPORT INFORMATION
  Report Type: Spontaneous
  Country: IT (occurrence: IT)
  Receive Date: 20171229
  Receipt Date: 20171229
  Transmission Date: 20180321
  Serious: Yes (Other)
  Sender: FDA-Public Use
  Company Number: IT-SA-2017SA261379

PATIENT
  Sex: Male

DRUGS (1)
  1. FASTURTEC [Suspect]
     Active Substance: RASBURICASE
     Route: 065

REACTIONS (10)
  - Oxygen saturation decreased [Unknown]
  - Haptoglobin decreased [Unknown]
  - Haemolysis [Unknown]
  - Blood bilirubin unconjugated increased [Unknown]
  - Anaemia [Unknown]
  - Cyanosis [Unknown]
  - Blood lactate dehydrogenase decreased [Unknown]
  - Blood methaemoglobin present [Unknown]
  - Blood lactate dehydrogenase increased [Unknown]
  - Blood bilirubin unconjugated decreased [Unknown]

NARRATIVE: CASE EVENT DATE: 20171204
